FAERS Safety Report 5420593-5 (Version None)
Quarter: 2007Q3

REPORT INFORMATION
  Report Type: 
  Country: None (occurrence: None)
  Receive Date: 20070816
  Receipt Date: 20070720
  Transmission Date: 20080115
  Serious: Yes (Other)
  Sender: FDA-Public Use
  Company Number: 6036235

PATIENT
  Age: 4 Year
  Sex: Male

DRUGS (6)
  1. FLUCONAZOLE [Suspect]
     Indication: PROPHYLAXIS
     Dosage: 100 MG (100 MG, 1 IN 1 D)
  2. TRETINOIN [Suspect]
     Indication: ACUTE PROMYELOCYTIC LEUKAEMIA
     Dosage: 45 MG/M2 (22,5 MG/M2, 2 IN 1 D)
  3. MEROPENEM(MEROPENEM) [Concomitant]
  4. AMPHOTERICIN B [Concomitant]
  5. CYTARABINE [Concomitant]
  6. DAUNORUBICIN HCL [Concomitant]

REACTIONS (2)
  - BENIGN INTRACRANIAL HYPERTENSION [None]
  - DRUG INTERACTION [None]
